FAERS Safety Report 9132895 (Version 3)
Quarter: 2013Q3

REPORT INFORMATION
  Report Type: Spontaneous
  Country: US (occurrence: US)
  Receive Date: 20130301
  Receipt Date: 20130809
  Transmission Date: 20140515
  Serious: Yes (Hospitalization, Disabling, Other)
  Sender: FDA-Public Use
  Company Number: US-009507513-1302USA013556

PATIENT
  Sex: Female
  Weight: 94.79 kg

DRUGS (3)
  1. NUVARING [Suspect]
     Indication: HORMONE THERAPY
     Dosage: IN 3 WKS, OUT ONE WEEK
     Route: 067
     Dates: start: 20110114, end: 20110307
  2. ZYRTEC [Concomitant]
     Indication: HYPERSENSITIVITY
     Dosage: 1 DF, QD
     Route: 048
     Dates: start: 201103
  3. GNC WOMENS ULTRA MEGA [Concomitant]
     Indication: ROUTINE HEALTH MAINTENANCE
     Dosage: UNK
     Route: 048
     Dates: start: 20110305

REACTIONS (8)
  - Cerebral decompression [Unknown]
  - Drain placement [Unknown]
  - Cerebrovascular accident [Unknown]
  - Hysterectomy [Unknown]
  - Depression [Unknown]
  - Deep vein thrombosis [Unknown]
  - Off label use [Unknown]
  - Craniotomy [Unknown]
